FAERS Safety Report 5634246-1 (Version None)
Quarter: 2008Q1

REPORT INFORMATION
  Report Type: 
  Country: None (occurrence: None)
  Receive Date: 20080131
  Receipt Date: 20070815
  Transmission Date: 20080703
  Serious: Yes (Other)
  Sender: FDA-Public Use
  Company Number: 160207USA

PATIENT
  Age: 56 Year
  Sex: Male

DRUGS (3)
  1. COPAXONE [Suspect]
     Indication: MULTIPLE SCLEROSIS
     Dosage: 20 MG, SUBCUTANEOUS
     Route: 058
     Dates: end: 20070802
  2. INTERFERON BETA-1A [Suspect]
     Indication: MULTIPLE SCLEROSIS
     Dates: start: 20061201
  3. INTERFERON BETA [Suspect]
     Indication: MULTIPLE SCLEROSIS
     Dates: start: 19960101, end: 20061201

REACTIONS (3)
  - DISEASE PROGRESSION [None]
  - MULTIPLE SCLEROSIS [None]
  - PARALYSIS [None]
